FAERS Safety Report 5556422-9 (Version None)
Quarter: 2007Q4

REPORT INFORMATION
  Report Type: 
  Country: None (occurrence: None)
  Receive Date: 20071130
  Receipt Date: 20070925
  Transmission Date: 20080405
  Serious: No
  Sender: FDA-Public Use
  Company Number: US200708004450

PATIENT
  Age: 65 Year
  Sex: Female

DRUGS (9)
  1. BYETTA [Suspect]
     Indication: TYPE 2 DIABETES MELLITUS
     Dosage: 5 UG, 2/D, SUBCUTANEOUS; 10UG, 2/D, SUBCUTANEOUS
     Route: 058
     Dates: start: 20070501, end: 20070601
  2. BYETTA [Suspect]
     Indication: TYPE 2 DIABETES MELLITUS
     Dosage: 5 UG, 2/D, SUBCUTANEOUS; 10UG, 2/D, SUBCUTANEOUS
     Route: 058
     Dates: start: 20070601
  3. BYETTA [Suspect]
     Indication: TYPE 2 DIABETES MELLITUS
     Dosage: 5 UG, 2/D, SUBCUTANEOUS; 10UG, 2/D, SUBCUTANEOUS
     Route: 058
     Dates: start: 20070901
  4. BYETTA [Suspect]
  5. INSULIN (INSULIN) [Concomitant]
  6. CARDIZEM [Concomitant]
  7. VYTORIN [Concomitant]
  8. ALLEGRA D (FENOFEXADINE HYDROCHLORIDE, PSEUDOEPHEDRINE HYDROCHLORIDE) [Concomitant]
  9. BENICAR [Concomitant]

REACTIONS (11)
  - BLOOD GLUCOSE DECREASED [None]
  - DIARRHOEA [None]
  - ERUCTATION [None]
  - FEELING ABNORMAL [None]
  - GASTROINTESTINAL HYPOMOTILITY [None]
  - NAUSEA [None]
  - NERVOUSNESS [None]
  - OEDEMA PERIPHERAL [None]
  - TREMOR [None]
  - VOMITING [None]
  - WEIGHT DECREASED [None]
